FAERS Safety Report 26063711 (Version 1)
Quarter: 2025Q4

REPORT INFORMATION
  Report Type: Report from Study
  Country: JP (occurrence: JP)
  Receive Date: 20251119
  Receipt Date: 20251119
  Transmission Date: 20260118
  Serious: Yes (Life-Threatening)
  Sender: REGENERON
  Company Number: JP-REGENERON PHARMACEUTICALS, INC.-2025-155718

PATIENT
  Age: 49 Year
  Sex: Female

DRUGS (1)
  1. CEMIPLIMAB [Suspect]
     Active Substance: CEMIPLIMAB
     Indication: Cervix carcinoma recurrent
     Dosage: 350 MG
     Dates: start: 20250620, end: 20250801

REACTIONS (1)
  - Disease progression [Not Recovered/Not Resolved]

NARRATIVE: CASE EVENT DATE: 20250822
